FAERS Safety Report 5264644-X (Version None)
Quarter: 2007Q1

REPORT INFORMATION
  Report Type: 
  Country: None (occurrence: None)
  Receive Date: 20061124
  Receipt Date: 20060626
  Transmission Date: 20070707
  Serious: Yes (Other)
  Sender: FDA-Public Use
  Company Number: HQWYE502930JUN06

PATIENT
  Age: 29 Year
  Sex: Female
  Weight: 88.53 kg

DRUGS (2)
  1. TRIPHASIL-28 [Suspect]
     Indication: CONTRACEPTION
     Dosage: 1 TABLET, 1X PER 1 DAY, ORAL
     Route: 048
     Dates: start: 19930101, end: 19930101
  2. ADVIL [Concomitant]

REACTIONS (2)
  - MUSCLE SPASMS [None]
  - NAUSEA [None]
